FAERS Safety Report 17370234 (Version 1)
Quarter: 2020Q1

REPORT INFORMATION
  Report Type: Spontaneous
  Country: US (occurrence: US)
  Receive Date: 20200205
  Receipt Date: 20200205
  Transmission Date: 20200409
  Serious: Yes (Hospitalization)
  Sender: FDA-Public Use
  Company Number: US-HIKMA PHARMACEUTICALS USA INC.-US-H14001-20-00343

PATIENT
  Age: 89 Year
  Sex: Female

DRUGS (2)
  1. MITIGARE [Suspect]
     Active Substance: COLCHICINE
     Indication: PRODUCT USED FOR UNKNOWN INDICATION
     Route: 065
  2. MITIGARE [Suspect]
     Active Substance: COLCHICINE

REACTIONS (3)
  - Pain [Unknown]
  - Chondrocalcinosis pyrophosphate [Unknown]
  - Gait inability [Unknown]
